FAERS Safety Report 7440583-0 (Version None)
Quarter: 2011Q2

REPORT INFORMATION
  Report Type: 
  Country: None (occurrence: None)
  Receive Date: 20110427
  Receipt Date: 20110421
  Transmission Date: 20111010
  Serious: Yes (Other)
  Sender: FDA-Public Use
  Company Number: B0693340A

PATIENT
  Age: 38 Year
  Sex: Female

DRUGS (2)
  1. ABILIFY [Suspect]
  2. PAXIL [Suspect]
     Route: 048

REACTIONS (1)
  - PARKINSONISM [None]
